FAERS Safety Report 4372333-9 (Version None)
Quarter: 2004Q2

REPORT INFORMATION
  Report Type: 
  Country: None (occurrence: None)
  Receive Date: 20040526
  Receipt Date: 20040513
  Transmission Date: 20050107
  Serious: Yes (Other)
  Sender: FDA-Public Use
  Company Number: 2004214429GB

PATIENT
  Age: 77 Year
  Sex: Female

DRUGS (8)
  1. CELEBREX [Suspect]
     Indication: OSTEOARTHRITIS
     Dosage: 100 MG, QD, ORAL
     Route: 048
     Dates: start: 20040416, end: 20040429
  2. QVAR (BECLOMETASONE DIPROPIONATE) [Concomitant]
  3. SALBUTAMOL (SALBUTAMOL) [Concomitant]
  4. SALMETEROL (SALMETEROL) [Concomitant]
  5. BECONASE (BECLOMETASONE DIPROPIONATE) [Concomitant]
  6. LANSOPRAZOLE [Concomitant]
  7. SENNA (SENNA) [Concomitant]
  8. ACETAMINOPHEN [Concomitant]

REACTIONS (3)
  - CONDITION AGGRAVATED [None]
  - DIARRHOEA [None]
  - WHEEZING [None]
